FAERS Safety Report 25669689 (Version 3)
Quarter: 2025Q4

REPORT INFORMATION
  Report Type: Spontaneous
  Country: EU (occurrence: EU)
  Receive Date: 20250812
  Receipt Date: 20251125
  Transmission Date: 20260118
  Serious: Yes (Hospitalization, Other)
  Sender: CSL BEHRING
  Company Number: EU-BEH-2025215378

PATIENT
  Age: 36 Year
  Sex: Female
  Weight: 100 kg

DRUGS (16)
  1. ALBUREX [Suspect]
     Active Substance: ALBUMIN HUMAN
     Dosage: 50G/L250 ML
     Route: 065
     Dates: start: 20250730
  2. PARECOXIB [Concomitant]
     Active Substance: PARECOXIB
     Dosage: 40 MG
     Route: 042
  3. EPHEDRINE HYDROCHLORIDE [Concomitant]
     Active Substance: EPHEDRINE HYDROCHLORIDE
  4. NOREPINEPHRINE BITARTRATE [Concomitant]
     Active Substance: NOREPINEPHRINE BITARTRATE
  5. ACETAMINOPHEN [Concomitant]
     Active Substance: ACETAMINOPHEN
     Dosage: 1000 MG
     Route: 042
  6. TRANEXAMIC ACID [Concomitant]
     Active Substance: TRANEXAMIC ACID
  7. CLONIDINE [Concomitant]
     Active Substance: CLONIDINE
     Dosage: 75 ?G
     Route: 042
  8. CLOXACILLIN [Concomitant]
     Active Substance: CLOXACILLIN
     Dosage: 2 G
     Route: 042
  9. BETAMETHASONE [Concomitant]
     Active Substance: BETAMETHASONE
  10. HYDROCORTISONE [Concomitant]
     Active Substance: HYDROCORTISONE
  11. CLEMASTINE [Concomitant]
     Active Substance: CLEMASTINE
  12. EPINEPHRINE [Concomitant]
     Active Substance: EPINEPHRINE
  13. CALCIUM GLUCONATE [Concomitant]
     Active Substance: CALCIUM GLUCONATE
  14. CALCIUM CARBONATE\CHOLECALCIFEROL [Concomitant]
     Active Substance: CALCIUM CARBONATE\CHOLECALCIFEROL
  15. ROCURONIUM [Concomitant]
     Active Substance: ROCURONIUM BROMIDE
     Dosage: 50 MG
     Route: 042
  16. ROPIVACAINE [Concomitant]
     Active Substance: ROPIVACAINE
     Dosage: 80 MG
     Route: 050

REACTIONS (14)
  - Anaphylactic reaction [Recovered/Resolved]
  - Hypotension [Recovered/Resolved]
  - Angioedema [Recovered/Resolved]
  - Device related infection [Recovered/Resolved]
  - Adverse reaction [Recovered/Resolved]
  - Hypovolaemia [Recovered/Resolved]
  - Oxygen saturation decreased [Recovered/Resolved]
  - Tachycardia [Recovered/Resolved]
  - Hypersensitivity [Recovered/Resolved]
  - Vasodilatation [Recovered/Resolved]
  - Blood pressure decreased [Recovered/Resolved]
  - Urticaria [Recovered/Resolved]
  - Metabolic acidosis [Recovered/Resolved]
  - Lung disorder [Recovered/Resolved]

NARRATIVE: CASE EVENT DATE: 20250730
